FAERS Safety Report 8595037-5 (Version None)
Quarter: 2012Q3

REPORT INFORMATION
  Report Type: 
  Country: None (occurrence: None)
  Receive Date: 20120806
  Receipt Date: 20120806
  Transmission Date: 20120928
  Serious: Yes (Other)
  Sender: FDA-Public Use
  Company Number: None

PATIENT
  Sex: Female
  Weight: 720 kg

DRUGS (1)
  1. TUBERCULIN NOS [Suspect]
     Indication: TUBERCULIN TEST
     Dosage: 0.1ML ONE TIME INTRADERMALLY
     Route: 023
     Dates: start: 20120730

REACTIONS (1)
  - PRURITUS [None]
